FAERS Safety Report 10788100 (Version 1)
Quarter: 2015Q1

REPORT INFORMATION
  Report Type: Spontaneous
  Country: CN (occurrence: None)
  Receive Date: 20150210
  Receipt Date: 20150210
  Transmission Date: 20150721
  Serious: Yes (Life-Threatening)
  Sender: FDA-Public Use
  Company Number: FK201500567

PATIENT
  Age: 58 Year
  Sex: Female

DRUGS (3)
  1. TACROLIMUS (TACROLIMUS) [Concomitant]
     Active Substance: TACROLIMUS
  2. METHYLPREDNISOLONE. [Suspect]
     Active Substance: METHYLPREDNISOLONE
  3. SIROLIMUS (SIROLIMUS) [Concomitant]

REACTIONS (9)
  - Diabetic hyperosmolar coma [None]
  - Urine output decreased [None]
  - Dry skin [None]
  - Enophthalmos [None]
  - Blood pressure decreased [None]
  - Asthenia [None]
  - Acidosis [None]
  - Electrolyte imbalance [None]
  - Confusional state [None]
